FAERS Safety Report 5690831-2 (Version None)
Quarter: 2008Q2

REPORT INFORMATION
  Report Type: 
  Country: None (occurrence: None)
  Receive Date: 20080401
  Receipt Date: 20080331
  Transmission Date: 20081010
  Serious: Yes (Hospitalization)
  Sender: FDA-Public Use
  Company Number: B0514474A

PATIENT
  Age: 38 Year
  Sex: Male

DRUGS (2)
  1. EPZICOM [Suspect]
     Indication: DRUG USE FOR UNKNOWN INDICATION
     Route: 048
  2. EPIVIR [Concomitant]
     Dosage: 100MG PER DAY
     Route: 048

REACTIONS (2)
  - OEDEMA PERIPHERAL [None]
  - RENAL DISORDER [None]
